FAERS Safety Report 7879290-9 (Version None)
Quarter: 2011Q4

REPORT INFORMATION
  Report Type: 
  Country: None (occurrence: None)
  Receive Date: 20111101
  Receipt Date: 20111021
  Transmission Date: 20120403
  Serious: Yes (Other)
  Sender: FDA-Public Use
  Company Number: US-BAYER-2011-049727

PATIENT
  Age: 37 Year
  Sex: Female
  Weight: 113 kg

DRUGS (11)
  1. ASCORBIC ACID [Concomitant]
     Indication: UNEVALUABLE EVENT
  2. ULTRAM [Concomitant]
  3. ZIAC [Concomitant]
     Indication: HYPERTENSION
     Dosage: UNK
     Dates: start: 20070101
  4. AMBIEN CR [Concomitant]
  5. NAPROSYN [Concomitant]
  6. YAZ [Suspect]
     Indication: CONTRACEPTION
     Dosage: UNK
     Route: 048
     Dates: start: 20070101, end: 20090101
  7. LISINOPRIL [Concomitant]
     Indication: BLOOD PRESSURE MANAGEMENT
     Dosage: UNK
     Dates: start: 19980101
  8. AMBIEN [Concomitant]
     Indication: INSOMNIA
     Dosage: UNK
     Dates: start: 20070101
  9. LORTAB [Concomitant]
  10. FML [Concomitant]
     Route: 047
  11. MEPROZINE [Concomitant]

REACTIONS (6)
  - PAIN [None]
  - ANXIETY [None]
  - FEAR [None]
  - CHOLECYSTITIS [None]
  - INJURY [None]
  - EMOTIONAL DISORDER [None]
